FAERS Safety Report 6585811-9 (Version None)
Quarter: 2010Q1

REPORT INFORMATION
  Report Type: 
  Country: None (occurrence: None)
  Receive Date: 20100217
  Receipt Date: 20100205
  Transmission Date: 20100710
  Serious: Yes (Other)
  Sender: FDA-Public Use
  Company Number: GB-PFIZER INC-2010019492

PATIENT
  Age: 55 Year
  Sex: Female

DRUGS (17)
  1. NICOTINE [Suspect]
     Indication: SMOKING CESSATION THERAPY
     Dosage: 2-3 BOTTLES PER WEEK
     Route: 045
     Dates: start: 20060717
  2. NICORETTE MICROTAB [Suspect]
     Indication: SMOKING CESSATION THERAPY
     Dosage: 15-20 TABLETS,DAILY
     Route: 060
     Dates: start: 20030101
  3. CO-CODAMOL [Concomitant]
     Indication: DRUG USE FOR UNKNOWN INDICATION
     Dosage: 30 MG, UNSPECIFIED
     Route: 065
  4. CO-CODAMOL [Concomitant]
     Dosage: 500 MG, UNSPECIFIED
  5. PREGABALIN [Concomitant]
     Indication: DRUG USE FOR UNKNOWN INDICATION
     Dosage: 25 MG, UNSPECIFIED
     Route: 065
  6. FYBOGEL [Concomitant]
     Indication: DRUG USE FOR UNKNOWN INDICATION
     Dosage: UNSPECIFIED
     Route: 065
  7. AMITRIPTYLINE [Concomitant]
     Indication: DRUG USE FOR UNKNOWN INDICATION
     Dosage: 25 MG, UNSPECIFIED
     Route: 065
  8. DIAZEPAM [Concomitant]
     Indication: DRUG USE FOR UNKNOWN INDICATION
     Dosage: 10MG - 1 TABLET ONCE DAILY, 10 MG, 1X/DAY
     Route: 065
  9. PARACETAMOL [Concomitant]
     Indication: DRUG USE FOR UNKNOWN INDICATION
     Dosage: 500 MG, UNSPECIFIED
     Route: 065
  10. PEPTAC [Concomitant]
     Indication: DRUG USE FOR UNKNOWN INDICATION
     Dosage: UNSPECIFIED
     Route: 065
  11. DOSULEPIN [Concomitant]
     Indication: DRUG USE FOR UNKNOWN INDICATION
     Dosage: 25 MG, UNSPECIFIED
     Route: 065
  12. LOPERAMIDE [Concomitant]
     Indication: DIARRHOEA
     Dosage: 2 MG,UNSPECIFIED
     Route: 065
  13. IPRATROPIUM BROMIDE [Concomitant]
     Indication: DRUG USE FOR UNKNOWN INDICATION
     Dosage: UNSPECIFIED
     Route: 065
  14. RANITIDINE [Concomitant]
     Indication: DRUG USE FOR UNKNOWN INDICATION
     Dosage: 150MG - 1 TABLET TWICE DAILY, 150 MG, 2X/DAY
     Route: 065
  15. VENTOLIN [Concomitant]
     Indication: DRUG USE FOR UNKNOWN INDICATION
     Dosage: 100 MCG, UNSPECIFIED
     Route: 048
  16. FLUPENTIXOL [Concomitant]
     Indication: DRUG USE FOR UNKNOWN INDICATION
     Dosage: 1 MG, UNSPECIFIED
     Route: 065
  17. PROPRANOLOL [Concomitant]
     Indication: DRUG USE FOR UNKNOWN INDICATION
     Dosage: 80 MG, UNSPECIFIED
     Route: 065

REACTIONS (8)
  - ABDOMINAL PAIN UPPER [None]
  - DEPENDENCE [None]
  - DYSPNOEA [None]
  - EXTRASYSTOLES [None]
  - GASTROOESOPHAGEAL REFLUX DISEASE [None]
  - INCORRECT DRUG ADMINISTRATION DURATION [None]
  - MEDICATION ERROR [None]
  - ORAL PAIN [None]
